FAERS Safety Report 11741548 (Version 6)
Quarter: 2018Q2

REPORT INFORMATION
  Report Type: Report from Study
  Country: CA (occurrence: CA)
  Receive Date: 20151116
  Receipt Date: 20180417
  Transmission Date: 20180711
  Serious: Yes (Other)
  Sender: FDA-Public Use
  Company Number: CA-ROCHE-1605703

PATIENT
  Age: 75 Year
  Sex: Male

DRUGS (8)
  1. CRESTOR [Concomitant]
     Active Substance: ROSUVASTATIN CALCIUM
  2. OXYGEN. [Concomitant]
     Active Substance: OXYGEN
  3. ESBRIET [Suspect]
     Active Substance: PIRFENIDONE
     Route: 048
     Dates: start: 2015
  4. SYNTHROID [Concomitant]
     Active Substance: LEVOTHYROXINE SODIUM
  5. NORVASC [Concomitant]
     Active Substance: AMLODIPINE BESYLATE
  6. ASPIRIN. [Concomitant]
     Active Substance: ASPIRIN
  7. PANTOPRAZOLE [Concomitant]
     Active Substance: PANTOPRAZOLE
  8. ESBRIET [Suspect]
     Active Substance: PIRFENIDONE
     Indication: IDIOPATHIC PULMONARY FIBROSIS
     Route: 048
     Dates: start: 20150420

REACTIONS (12)
  - Hepatic steatosis [Unknown]
  - Impaired work ability [Unknown]
  - Rash papular [Not Recovered/Not Resolved]
  - Hypotension [Unknown]
  - Decreased appetite [Unknown]
  - Weight decreased [Unknown]
  - Oxygen consumption increased [Unknown]
  - Dizziness [Unknown]
  - Pulmonary function test decreased [Unknown]
  - Rash erythematous [Not Recovered/Not Resolved]
  - Gamma-glutamyltransferase increased [Unknown]
  - Fatigue [Not Recovered/Not Resolved]

NARRATIVE: CASE EVENT DATE: 20150703
